FAERS Safety Report 17047323 (Version 1)
Quarter: 2019Q4

REPORT INFORMATION
  Report Type: Spontaneous
  Country: US (occurrence: US)
  Receive Date: 20191118
  Receipt Date: 20191118
  Transmission Date: 20200122
  Serious: No
  Sender: FDA-Public Use
  Company Number: None

PATIENT

DRUGS (2)
  1. EPTIFIBATIDE INJECTION [Suspect]
     Active Substance: EPTIFIBATIDE
  2. MYXREDLIN [Suspect]
     Active Substance: INSULIN HUMAN

REACTIONS (3)
  - Product packaging confusion [None]
  - Wrong drug [None]
  - Circumstance or information capable of leading to medication error [None]
